FAERS Safety Report 7412832-6 (Version None)
Quarter: 2011Q2

REPORT INFORMATION
  Report Type: 
  Country: None (occurrence: None)
  Receive Date: 20110413
  Receipt Date: 20110405
  Transmission Date: 20111010
  Serious: Yes (Hospitalization)
  Sender: FDA-Public Use
  Company Number: B0711746A

PATIENT
  Sex: Male
  Weight: 60 kg

DRUGS (11)
  1. DEXAMETHASONE SODIUM PHOSPHATE [Concomitant]
     Indication: STEM CELL TRANSPLANT
     Dosage: 40MG PER DAY
     Dates: start: 20090301, end: 20090304
  2. TAKEPRON [Concomitant]
     Dosage: 30MG PER DAY
     Route: 048
     Dates: start: 20081021, end: 20090421
  3. ZOVIRAX [Concomitant]
     Dosage: 1000MG PER DAY
     Route: 048
     Dates: start: 20090226, end: 20090326
  4. TRIBENOSIDE [Concomitant]
     Dosage: 600MG PER DAY
     Route: 048
     Dates: start: 20081124, end: 20090421
  5. ENDOXAN [Concomitant]
     Indication: STEM CELL TRANSPLANT
     Dosage: 3600MG PER DAY
     Dates: start: 20090301, end: 20090302
  6. CRAVIT [Concomitant]
     Dosage: 400MG PER DAY
     Route: 048
     Dates: start: 20090213, end: 20090312
  7. URSO 250 [Concomitant]
     Dosage: 600MG PER DAY
     Route: 048
     Dates: start: 20090219, end: 20090323
  8. ALKERAN [Suspect]
     Indication: STEM CELL TRANSPLANT
     Dosage: 210MG PER DAY
     Route: 042
     Dates: start: 20090304, end: 20090304
  9. FUNGUARD [Concomitant]
     Dosage: 50MG PER DAY
     Route: 042
     Dates: start: 20090219, end: 20090318
  10. VEPESID [Concomitant]
     Indication: STEM CELL TRANSPLANT
     Dosage: 490MG PER DAY
     Route: 042
     Dates: start: 20090301, end: 20090303
  11. GASMOTIN [Concomitant]
     Dosage: 150MG PER DAY
     Route: 048
     Dates: start: 20081205, end: 20090421

REACTIONS (1)
  - FEBRILE NEUTROPENIA [None]
